FAERS Safety Report 4514934-0 (Version None)
Quarter: 2004Q4

REPORT INFORMATION
  Report Type: 
  Country: None (occurrence: None)
  Receive Date: 20041201
  Receipt Date: 20041118
  Transmission Date: 20050328
  Serious: Yes (Death)
  Sender: FDA-Public Use
  Company Number: FR-SOLVAY-00204004191

PATIENT
  Age: 72 Year
  Sex: Female
  Weight: 90 kg

DRUGS (8)
  1. ISOPTIN [Concomitant]
     Indication: ILL-DEFINED DISORDER
     Dosage: DAILY DOSE:  UNKNOWN
     Route: 048
     Dates: start: 20040524
  2. COVERSYL [Suspect]
     Indication: CARDIAC FAILURE
     Dosage: DAILY DOSE: 2 MILLIGRAM(S)
     Route: 048
     Dates: start: 19951011, end: 20040831
  3. CRESTOR [Concomitant]
     Indication: ILL-DEFINED DISORDER
     Dosage: DAILY DOSE:  UNKNOWN
     Route: 048
     Dates: start: 20040524
  4. SOLU-MEDROL [Suspect]
     Indication: POLYARTHRITIS
     Dosage: DAILY DOSE: 60 MILLIGRAM(S)
     Route: 042
     Dates: start: 20040822, end: 20040830
  5. NITROGLYCERIN [Suspect]
     Indication: CARDIAC FAILURE
     Dosage: DAILY DOSE: 10 MILLIGRAM(S)
     Route: 065
     Dates: start: 19951011, end: 20040831
  6. VIOXX [Suspect]
     Indication: CARDIAC FAILURE
     Dosage: DAILY DOSE: 25 MILLIGRAM(S)
     Route: 048
     Dates: start: 20040825, end: 20040831
  7. ENBREL [Suspect]
     Indication: POLYARTHRITIS
     Dosage: DAILY DOSE:  UNKNOWN
     Route: 058
     Dates: start: 20010611, end: 20040821
  8. ASPIRIN [Suspect]
     Indication: CARDIAC FAILURE
     Dosage: DAILY DOSE: 160 MILLIGRAM(S)
     Route: 048
     Dates: start: 19951011, end: 20040831

REACTIONS (6)
  - COLITIS [None]
  - GASTROINTESTINAL DISORDER [None]
  - MONARTHRITIS [None]
  - PERITONITIS [None]
  - PNEUMOPERITONEUM [None]
  - SMALL INTESTINAL PERFORATION [None]
